FAERS Safety Report 5396332-3 (Version None)
Quarter: 2007Q3

REPORT INFORMATION
  Report Type: 
  Country: None (occurrence: None)
  Receive Date: 20070725
  Receipt Date: 20070716
  Transmission Date: 20080115
  Serious: Yes (Death, Hospitalization)
  Sender: FDA-Public Use
  Company Number: HQWYE094117JUL07

PATIENT
  Age: 58 Year
  Sex: Female

DRUGS (7)
  1. EFFEXOR [Suspect]
     Dosage: OVERDOSE AMOUNT UNKNOWN
     Route: 048
  2. ABILIFY [Suspect]
     Dosage: OVERDOSE AMOUNT UNKNOWN
  3. PHENCYCLIDINE [Suspect]
     Dosage: UNKNOWN
  4. UNISOM [Suspect]
     Dosage: OVERDOSE AMOUNT UNKNOWN
     Route: 048
  5. CHARCOAL, ACTIVATED [Suspect]
     Dosage: UNKNOWN
  6. BENADRYL [Suspect]
     Dosage: OVERDOSE AMOUNT UNKNOWN
     Route: 048
  7. CLONAZEPAM [Suspect]
     Dosage: OVERDOSE AMOUNT UNKNOWN

REACTIONS (8)
  - ARRHYTHMIA [None]
  - ASPIRATION [None]
  - BLOOD PH DECREASED [None]
  - CARDIAC ARREST [None]
  - INTENTIONAL OVERDOSE [None]
  - LUNG INFILTRATION [None]
  - MYOCARDIAL INFARCTION [None]
  - UNRESPONSIVE TO STIMULI [None]
